FAERS Safety Report 8835193 (Version 3)
Quarter: 2012Q4

REPORT INFORMATION
  Report Type: 
  Country: US (occurrence: US)
  Receive Date: 20121011
  Receipt Date: 20121206
  Transmission Date: 20130627
  Serious: Yes (Death)
  Sender: FDA-Public Use
  Company Number: US-GILEAD-2012-0062505

PATIENT
  Sex: Female

DRUGS (9)
  1. LETAIRIS [Suspect]
     Indication: PULMONARY HYPERTENSION
     Dosage: 10 mg, QD
     Dates: start: 20090618, end: 20121003
  2. LETAIRIS [Suspect]
     Indication: DRUG ABUSE
  3. REMODULIN [Concomitant]
  4. REVATIO [Concomitant]
  5. CELLCEPT                           /01275102/ [Concomitant]
  6. LEXAPRO [Concomitant]
  7. LOVASTATIN [Concomitant]
  8. FLUOXETINE [Concomitant]
  9. MISOPROSTOL [Concomitant]

REACTIONS (3)
  - Pulmonary arterial hypertension [Fatal]
  - Right ventricular failure [Fatal]
  - Back injury [Fatal]
